FAERS Safety Report 6572187-6 (Version None)
Quarter: 2010Q1

REPORT INFORMATION
  Report Type: 
  Country: None (occurrence: None)
  Receive Date: 20100205
  Receipt Date: 20100129
  Transmission Date: 20100710
  Serious: Yes (Death)
  Sender: FDA-Public Use
  Company Number: D0066288A

PATIENT
  Age: 60 Year
  Sex: Male

DRUGS (1)
  1. ESKAZOLE [Suspect]
     Route: 065

REACTIONS (2)
  - DEATH [None]
  - POLYNEUROPATHY [None]
